FAERS Safety Report 16247182 (Version 2)
Quarter: 2019Q2

REPORT INFORMATION
  Report Type: Spontaneous
  Country: JP (occurrence: JP)
  Receive Date: 20190427
  Receipt Date: 20190620
  Transmission Date: 20190711
  Serious: Yes (Other)
  Sender: FDA-Public Use
  Company Number: JP-CELLTRION INC.-2019JP019397

PATIENT

DRUGS (1)
  1. TRASTUZUMAB BS FOR I.V.INFUSION 60MG[NK] [Suspect]
     Active Substance: TRASTUZUMAB
     Indication: BREAST CANCER RECURRENT
     Dosage: 111 MG, WEEKLY
     Route: 042
     Dates: start: 20181206, end: 20190201

REACTIONS (1)
  - Ventricular extrasystoles [Recovered/Resolved]

NARRATIVE: CASE EVENT DATE: 20190201
